FAERS Safety Report 20697579 (Version 5)
Quarter: 2024Q1

REPORT INFORMATION
  Report Type: Spontaneous
  Country: JP (occurrence: JP)
  Receive Date: 20220411
  Receipt Date: 20240226
  Transmission Date: 20240410
  Serious: Yes (Hospitalization, Other)
  Sender: FDA-Public Use
  Company Number: JP-MSD-M2022-04779

PATIENT
  Age: 7 Decade
  Sex: Female

DRUGS (9)
  1. KEYTRUDA [Suspect]
     Active Substance: PEMBROLIZUMAB
     Indication: Endometrial cancer stage III
     Dosage: 200 MILLIGRAM, Q3W
     Route: 041
     Dates: start: 20220201, end: 20220201
  2. KEYTRUDA [Suspect]
     Active Substance: PEMBROLIZUMAB
     Dosage: 200 MILLIGRAM, Q3W
     Route: 041
     Dates: start: 2022, end: 202206
  3. KEYTRUDA [Suspect]
     Active Substance: PEMBROLIZUMAB
     Dosage: 200 MILLIGRAM, Q3W
     Route: 041
  4. LENVIMA [Suspect]
     Active Substance: LENVATINIB
     Indication: Endometrial cancer stage III
     Dosage: 20 MILLIGRAM, QD
     Route: 048
     Dates: start: 20220201, end: 20220215
  5. LENVIMA [Suspect]
     Active Substance: LENVATINIB
     Dosage: 20 MILLIGRAM, QD
     Route: 048
     Dates: start: 20220220, end: 20220220
  6. LENVIMA [Suspect]
     Active Substance: LENVATINIB
     Dosage: 20 MILLIGRAM, QD
     Route: 048
     Dates: start: 20220328, end: 202206
  7. LENVIMA [Suspect]
     Active Substance: LENVATINIB
     Dosage: 14 MILLIGRAM
     Route: 048
     Dates: start: 20220618
  8. EZETIMIBE [Concomitant]
     Active Substance: EZETIMIBE
     Dosage: UNK
     Route: 065
  9. ROSUVASTATIN CALCIUM [Concomitant]
     Active Substance: ROSUVASTATIN CALCIUM
     Dosage: UNK
     Route: 065

REACTIONS (7)
  - Cytokine release syndrome [Recovered/Resolved]
  - Drug eruption [Recovered/Resolved]
  - Immune-mediated hypothyroidism [Recovered/Resolved]
  - Diarrhoea [Recovered/Resolved]
  - Ascites [Unknown]
  - Hypertension [Recovering/Resolving]
  - Coronavirus infection [Recovered/Resolved]

NARRATIVE: CASE EVENT DATE: 20220101
